FAERS Safety Report 15282543 (Version 1)
Quarter: 2018Q3

REPORT INFORMATION
  Report Type: Report from Study
  Country: GB (occurrence: GB)
  Receive Date: 20180816
  Receipt Date: 20180816
  Transmission Date: 20181010
  Serious: Yes (Hospitalization, Other)
  Sender: FDA-Public Use
  Company Number: GB-AXELLIA-001832

PATIENT
  Age: 76 Year
  Sex: Female
  Weight: 72.6 kg

DRUGS (22)
  1. MACROGOL/MACROGOL STEARATE [Concomitant]
     Indication: PRODUCT USED FOR UNKNOWN INDICATION
     Dosage: 1 SACHET, BID
     Route: 048
     Dates: start: 20180313, end: 20180328
  2. SODIUM LACTATE. [Concomitant]
     Active Substance: SODIUM LACTATE
     Dosage: 125 ML/HR CONTINUOUS INFUSION
     Route: 042
     Dates: start: 20180314, end: 20180314
  3. METARAMINOL [Concomitant]
     Active Substance: METARAMINOL
     Indication: PRODUCT USED FOR UNKNOWN INDICATION
     Route: 042
     Dates: start: 20180313, end: 20180313
  4. SODIUM CHLORIDE. [Concomitant]
     Active Substance: SODIUM CHLORIDE
     Indication: PRODUCT USED FOR UNKNOWN INDICATION
     Route: 042
     Dates: start: 20180317, end: 20180319
  5. LEVOBUPIVACAINE/LEVOBUPIVACAINE HYDROCHLORIDE [Concomitant]
     Indication: PRODUCT USED FOR UNKNOWN INDICATION
     Dates: start: 20180313, end: 20180313
  6. IOHEXOL [Concomitant]
     Active Substance: IOHEXOL
     Indication: PRODUCT USED FOR UNKNOWN INDICATION
     Route: 042
     Dates: start: 20180319, end: 20180319
  7. MORPHINE [Concomitant]
     Active Substance: MORPHINE
     Indication: PAIN
     Dosage: 2.5 ? 10 MG, AS NECESSARY
     Route: 048
     Dates: start: 20180312, end: 20180315
  8. MORPHINE [Concomitant]
     Active Substance: MORPHINE
     Dosage: 0.5?2 MG
     Route: 042
     Dates: start: 20180312, end: 20180313
  9. DALTEPARIN [Concomitant]
     Active Substance: DALTEPARIN
     Indication: PRODUCT USED FOR UNKNOWN INDICATION
     Dosage: UNITS
     Route: 058
     Dates: start: 20180312, end: 20180322
  10. PROPOFOL. [Concomitant]
     Active Substance: PROPOFOL
     Indication: INJURY
     Dosage: 10?30 MG
     Route: 042
     Dates: start: 20180312, end: 20180312
  11. AMITRIPTYLINE [Concomitant]
     Active Substance: AMITRIPTYLINE
     Dosage: 50 MG, DAILY
     Route: 048
     Dates: start: 20180317, end: 20180328
  12. NALOXONE [Concomitant]
     Active Substance: NALOXONE
     Indication: PRODUCT USED FOR UNKNOWN INDICATION
     Route: 042
     Dates: start: 20180313, end: 20180314
  13. CYCLIZINE [Concomitant]
     Active Substance: CYCLIZINE
     Indication: NAUSEA
     Route: 042
     Dates: start: 20180313, end: 20180314
  14. VANCOMYCIN [Suspect]
     Active Substance: VANCOMYCIN
     Indication: INFECTION
     Dosage: IN SODIUM CHLORIDE 0.9% 50 ML (1000 MG, IN 24 HRS
     Route: 042
     Dates: start: 20180313, end: 20180313
  15. TRANEXAMIC ACID. [Concomitant]
     Active Substance: TRANEXAMIC ACID
     Indication: PRODUCT USED FOR UNKNOWN INDICATION
     Dates: start: 20180313, end: 20180313
  16. ANASTROZOLE. [Concomitant]
     Active Substance: ANASTROZOLE
     Indication: PRODUCT USED FOR UNKNOWN INDICATION
     Route: 048
     Dates: start: 20180312, end: 20180328
  17. LISINOPRIL. [Suspect]
     Active Substance: LISINOPRIL
     Indication: PRODUCT USED FOR UNKNOWN INDICATION
     Route: 048
     Dates: start: 20180314, end: 20180326
  18. FENTANYL. [Concomitant]
     Active Substance: FENTANYL
     Indication: PRODUCT USED FOR UNKNOWN INDICATION
     Dosage: 25 ? 50 MCG
     Route: 042
     Dates: start: 20180313, end: 20180313
  19. PENTHROX [Suspect]
     Active Substance: METHOXYFLURANE
     Indication: PAIN
     Route: 055
     Dates: start: 20180312, end: 20180312
  20. GENTAMICIN. [Suspect]
     Active Substance: GENTAMICIN
     Indication: PRODUCT USED FOR UNKNOWN INDICATION
     Dates: start: 20180313, end: 20180313
  21. PARACETAMOL [Concomitant]
     Active Substance: ACETAMINOPHEN
     Indication: PAIN
     Route: 042
     Dates: start: 20180312, end: 20180312
  22. PARACETAMOL [Concomitant]
     Active Substance: ACETAMINOPHEN
     Dosage: PARACETAMOL TABLET 1G OR INFUSION 1G (4 IN 1 DAY)
     Dates: start: 20180313, end: 20180328

REACTIONS (2)
  - Acute kidney injury [Recovered/Resolved]
  - Pulmonary embolism [Recovering/Resolving]

NARRATIVE: CASE EVENT DATE: 20180314
